FAERS Safety Report 16689338 (Version 1)
Quarter: 2019Q3

REPORT INFORMATION
  Report Type: Spontaneous
  Country: CN (occurrence: CN)
  Receive Date: 20190809
  Receipt Date: 20190809
  Transmission Date: 20191004
  Serious: Yes (Hospitalization, Other)
  Sender: FDA-Public Use
  Company Number: PHHY2019CN182155

PATIENT
  Age: 36 Year
  Sex: Male
  Weight: 78 kg

DRUGS (5)
  1. VORICONAZOLE. [Suspect]
     Active Substance: VORICONAZOLE
     Indication: PNEUMONIA
     Dosage: 300 MG, Q12H (IVGTT)
     Route: 042
     Dates: start: 20171014
  2. VORICONAZOLE. [Suspect]
     Active Substance: VORICONAZOLE
     Dosage: 200 MG, Q12H (IVGTT) [DAY 2]
     Route: 042
  3. VORICONAZOLE. [Suspect]
     Active Substance: VORICONAZOLE
     Dosage: 200 MG, Q12H [DAY 11]
     Route: 048
  4. IMIPENEM [Concomitant]
     Active Substance: IMIPENEM
     Indication: PNEUMONIA
     Dosage: 0.5 G, Q6H [IMIPENEM/ CILITASTAT SODIUM FOR INJECTION(1:1) IVGTT]
     Route: 042
     Dates: start: 20171014
  5. VORICONAZOLE. [Suspect]
     Active Substance: VORICONAZOLE
     Dosage: 150 MG, Q12H [DAY 4]
     Route: 048

REACTIONS (9)
  - Malaise [Recovered/Resolved]
  - Hallucination [Recovered/Resolved]
  - Visual impairment [Recovered/Resolved]
  - Electrolyte imbalance [Recovered/Resolved]
  - Vitreous floaters [Recovered/Resolved]
  - Sleep disorder [Recovered/Resolved]
  - Tremor [Recovered/Resolved]
  - Drug level decreased [Recovered/Resolved]
  - Chest discomfort [Recovered/Resolved]
